FAERS Safety Report 23385783 (Version 1)
Quarter: 2024Q1

REPORT INFORMATION
  Report Type: Report from Study
  Country: US (occurrence: US)
  Receive Date: 20240110
  Receipt Date: 20240110
  Transmission Date: 20240409
  Serious: No
  Sender: FDA-Public Use
  Company Number: US-ALXN-202401USA000366US

PATIENT
  Sex: Female

DRUGS (1)
  1. STRENSIQ [Suspect]
     Active Substance: ASFOTASE ALFA
     Indication: Product used for unknown indication
     Dosage: UNK
     Route: 065

REACTIONS (7)
  - Injection related reaction [Unknown]
  - Eye swelling [Unknown]
  - Peripheral swelling [Unknown]
  - Lip swelling [Unknown]
  - Product dose omission issue [Unknown]
  - Erythema [Unknown]
  - Pain [Unknown]
